FAERS Safety Report 23300816 (Version 2)
Quarter: 2024Q1

REPORT INFORMATION
  Report Type: Spontaneous
  Country: US (occurrence: US)
  Receive Date: 20231215
  Receipt Date: 20240111
  Transmission Date: 20240410
  Serious: No
  Sender: FDA-Public Use
  Company Number: US-SANDOZ-SDZ2023US043551

PATIENT
  Sex: Female

DRUGS (1)
  1. ALBUTEROL SULFATE [Suspect]
     Active Substance: ALBUTEROL SULFATE
     Indication: Chronic obstructive pulmonary disease
     Dosage: 90MCG/DOS 200DO 2 PUFFS BY MOUTH 4 TIMES A  DAY AS NEEDED
     Route: 065

REACTIONS (3)
  - Dysphagia [Unknown]
  - Device defective [Unknown]
  - Off label use [Unknown]
